FAERS Safety Report 25983840 (Version 1)
Quarter: 2025Q4

REPORT INFORMATION
  Report Type: Spontaneous
  Country: US (occurrence: None)
  Receive Date: 20251030
  Receipt Date: 20251030
  Transmission Date: 20260118
  Serious: Yes (Hospitalization)
  Sender: FDA-CTU
  Company Number: None

PATIENT
  Age: 57 Year
  Sex: Female
  Weight: 77.8 kg

DRUGS (29)
  1. TERIFLUNOMIDE [Suspect]
     Active Substance: TERIFLUNOMIDE
     Indication: Multiple sclerosis
     Dosage: 1 DOSAGE FORM - DF DAILY ORAL?
     Route: 048
     Dates: start: 20240212
  2. OMEPRAZOLE [Concomitant]
     Active Substance: OMEPRAZOLE
  3. VITAMIN D3 5000 IU [Concomitant]
  4. AZO DUAL PROTECTION [Concomitant]
  5. FLUTICASONE NS 50MCG [Concomitant]
  6. CETIRIZINE [Concomitant]
     Active Substance: CETIRIZINE HYDROCHLORIDE
  7. NURTEC OCT 75MG [Concomitant]
  8. DUOMEB 0.5/2.5MG/3ML NEB [Concomitant]
  9. ACETAMINOPHEN [Concomitant]
     Active Substance: ACETAMINOPHEN
  10. ASPIRIM 81MG [Concomitant]
  11. TRAMADOL [Concomitant]
     Active Substance: TRAMADOL
  12. LEVOTHYROXINE [Concomitant]
     Active Substance: LEVOTHYROXINE
  13. PROGESTERONE [Concomitant]
     Active Substance: PROGESTERONE
  14. VITAMIN B COMPLEX [Concomitant]
     Active Substance: CYANOCOBALAMIN\DEXPANTHENOL\NIACINAMIDE\PYRIDOXINE HYDROCHLORIDE\RIBOFLAVIN 5^-PHOSPHATE SODIUM\THIA
  15. MELATONIN [Concomitant]
     Active Substance: MELATONIN
  16. ASCORBIC ACID\IRON [Concomitant]
     Active Substance: ASCORBIC ACID\IRON
  17. FAMOTIDINE [Concomitant]
     Active Substance: FAMOTIDINE
  18. ATORVASTATIN [Concomitant]
     Active Substance: ATORVASTATIN
  19. OXYBUTYNIN CHLORIDE [Concomitant]
     Active Substance: OXYBUTYNIN CHLORIDE
  20. DULOXETINE [Concomitant]
     Active Substance: DULOXETINE
  21. DULOXETINE [Concomitant]
     Active Substance: DULOXETINE
  22. WARFARIN [Concomitant]
     Active Substance: WARFARIN
  23. WARFARIN [Concomitant]
     Active Substance: WARFARIN
  24. TOPIRAMATE [Concomitant]
     Active Substance: TOPIRAMATE
  25. MONTELUKAST SODIUM [Concomitant]
     Active Substance: MONTELUKAST SODIUM
  26. POTASSIUM CHLORIDE [Concomitant]
     Active Substance: POTASSIUM CHLORIDE
  27. LOSARTAN [Concomitant]
     Active Substance: LOSARTAN
  28. METOCLOPRAMIDE [Concomitant]
     Active Substance: METOCLOPRAMIDE
  29. DOXYCYCLINE HYCLATE [Concomitant]
     Active Substance: DOXYCYCLINE HYCLATE

REACTIONS (4)
  - Abdominal pain [None]
  - Gastrointestinal disorder [None]
  - Hepatic enzyme increased [None]
  - Burning sensation [None]

NARRATIVE: CASE EVENT DATE: 20250804
